FAERS Safety Report 4288544-7 (Version None)
Quarter: 2004Q1

REPORT INFORMATION
  Report Type: 
  Country: None (occurrence: None)
  Receive Date: 20040205
  Receipt Date: 20040115
  Transmission Date: 20041129
  Serious: Yes (Hospitalization)
  Sender: FDA-Public Use
  Company Number: CEL-2003-04433-ROC (0)

PATIENT
  Age: 79 Year
  Sex: Female
  Weight: 56.246 kg

DRUGS (6)
  1. TUSSIONEX [Suspect]
     Indication: COUGH
     Dosage: 10 ML (5 ML, TWICE DAILY), PO
     Route: 048
     Dates: start: 20031215, end: 20031216
  2. FOSMAX (ALENDRONATE SODIUM) [Concomitant]
  3. VITAMINS (VITAMINS) [Concomitant]
  4. BIAXIN XL [Concomitant]
  5. ALBUTEROL [Concomitant]
  6. ATROVENT [Concomitant]

REACTIONS (7)
  - CHRONIC OBSTRUCTIVE AIRWAYS DISEASE EXACERBATED [None]
  - DIFFICULTY IN WALKING [None]
  - DIZZINESS [None]
  - FEELING ABNORMAL [None]
  - FEELING JITTERY [None]
  - INSOMNIA [None]
  - TREMOR [None]
